FAERS Safety Report 14228862 (Version 2)
Quarter: 2017Q4

REPORT INFORMATION
  Report Type: Spontaneous
  Country: US (occurrence: US)
  Receive Date: 20171128
  Receipt Date: 20171220
  Transmission Date: 20180321
  Serious: Yes (Other)
  Sender: FDA-Public Use
  Company Number: US-CLOVIS ONCOLOGY-CLO-2017-001360

PATIENT
  Age: 72 Year
  Sex: Female

DRUGS (1)
  1. RUBRACA [Suspect]
     Active Substance: RUCAPARIB CAMSYLATE
     Indication: OVARIAN CANCER
     Dosage: UNK
     Route: 048

REACTIONS (3)
  - Carbohydrate antigen 125 increased [Recovered/Resolved]
  - Malignant neoplasm progression [Recovered/Resolved]
  - Computerised tomogram abnormal [Recovered/Resolved]

NARRATIVE: CASE EVENT DATE: 201710
